FAERS Safety Report 8840167 (Version 2)
Quarter: 2012Q4

REPORT INFORMATION
  Report Type: Report from Study
  Country: US (occurrence: US)
  Receive Date: 20121015
  Receipt Date: 20121105
  Transmission Date: 20130627
  Serious: Yes (Hospitalization)
  Sender: FDA-Public Use
  Company Number: US-ROCHE-1145107

PATIENT
  Age: 13 Year
  Weight: 42.22 kg

DRUGS (6)
  1. OMALIZUMAB [Suspect]
     Indication: ASTHMA
     Route: 058
     Dates: start: 20120620, end: 20120720
  2. ADVAIR [Concomitant]
  3. ALLEGRA [Concomitant]
  4. ALBUTEROL [Concomitant]
  5. FLONASE [Concomitant]
  6. SINGULAIR [Concomitant]

REACTIONS (2)
  - Asthma [Recovering/Resolving]
  - Drug dose omission [Unknown]
